FAERS Safety Report 4856707-5 (Version None)
Quarter: 2005Q4

REPORT INFORMATION
  Report Type: 
  Country: None (occurrence: None)
  Receive Date: 20051219
  Receipt Date: 20050117
  Transmission Date: 20060501
  Serious: No
  Sender: FDA-Public Use
  Company Number: US-GLAXOSMITHKLINE-A0540846A

PATIENT
  Age: 29 Year
  Sex: Female

DRUGS (4)
  1. EQUATE NTS 21MG [Suspect]
  2. NICORETTE [Suspect]
  3. EQUATE NTS 14MG [Suspect]
  4. NICODERM CQ [Suspect]

REACTIONS (11)
  - APPLICATION SITE IRRITATION [None]
  - APPLICATION SITE PRURITUS [None]
  - ASTHENIA [None]
  - BURNING SENSATION MUCOSAL [None]
  - DIARRHOEA [None]
  - DIZZINESS [None]
  - GINGIVAL SWELLING [None]
  - MIGRAINE [None]
  - NAUSEA [None]
  - SWELLING FACE [None]
  - VOMITING [None]
